FAERS Safety Report 13184036 (Version 2)
Quarter: 2017Q1

REPORT INFORMATION
  Report Type: Spontaneous
  Country: US (occurrence: US)
  Receive Date: 20170203
  Receipt Date: 20170308
  Transmission Date: 20170428
  Serious: No
  Sender: FDA-Public Use
  Company Number: US-SHIRE-US201700548

PATIENT
  Age: 12 Year
  Sex: Male
  Weight: 48.6 kg

DRUGS (1)
  1. VYVANSE [Suspect]
     Active Substance: LISDEXAMFETAMINE DIMESYLATE
     Indication: ATTENTION DEFICIT/HYPERACTIVITY DISORDER
     Dosage: 30 MG, EVERY AM, 1X/DAY:QD
     Route: 048
     Dates: start: 20160906, end: 20170106

REACTIONS (1)
  - Aggression [Recovered/Resolved]

NARRATIVE: CASE EVENT DATE: 20160906
